FAERS Safety Report 4817006-0 (Version None)
Quarter: 2005Q4

REPORT INFORMATION
  Report Type: 
  Country: None (occurrence: None)
  Receive Date: 20051101
  Receipt Date: 19951020
  Transmission Date: 20060501
  Serious: Yes (Hospitalization)
  Sender: FDA-Public Use
  Company Number: FR-GLAXOSMITHKLINE-B0187893A

PATIENT
  Age: 70 Year
  Sex: Female
  Weight: 61 kg

DRUGS (12)
  1. BROMOCRIPTINE MESYLATE [Suspect]
     Indication: PARKINSON'S DISEASE
     Route: 048
     Dates: start: 19950120
  2. ROPINIROLE [Suspect]
     Indication: PARKINSON'S DISEASE
     Route: 048
     Dates: start: 19951125, end: 19971127
  3. LEVODOPA [Concomitant]
     Indication: PARKINSON'S DISEASE
     Dosage: 900MG PER DAY
     Route: 048
  4. SINEMET [Concomitant]
     Indication: PARKINSON'S DISEASE
     Dosage: 200MG PER DAY
     Route: 048
  5. LEVODOPA [Concomitant]
     Dosage: 125MG TWICE PER DAY
     Route: 048
  6. TEMESTA [Concomitant]
     Indication: INSOMNIA
     Dosage: 2.5MG PER DAY
     Route: 048
  7. ATHYMIL 30 [Concomitant]
     Indication: DEPRESSION
     Dosage: 3TAB PER DAY
     Route: 048
  8. DUPHALAC [Concomitant]
     Indication: CONSTIPATION
     Dosage: 3TSP PER DAY
     Dates: start: 19950203
  9. MOTILIUM [Concomitant]
     Indication: PROPHYLAXIS
     Dosage: 60MG PER DAY
     Dates: start: 19961010
  10. ZOLTUM [Concomitant]
     Indication: GASTRITIS
     Dosage: 20MG PER DAY
     Dates: start: 19950519
  11. SULFARLEM [Concomitant]
     Indication: DRY MOUTH
     Dosage: 3TAB PER DAY
     Dates: start: 19941005
  12. LEXOMIL BROMAZEPAM [Concomitant]
     Indication: ANXIETY
     Dosage: 4.5MG PER DAY
     Dates: start: 19940202

REACTIONS (3)
  - DYSKINESIA [None]
  - PARKINSON'S DISEASE [None]
  - WEIGHT DECREASED [None]
